FAERS Safety Report 8435461-4 (Version None)
Quarter: 2012Q2

REPORT INFORMATION
  Report Type: 
  Country: None (occurrence: None)
  Receive Date: 20120614
  Receipt Date: 20120608
  Transmission Date: 20120825
  Serious: Yes (Life-Threatening, Other)
  Sender: FDA-Public Use
  Company Number: GB-PFIZER INC-2012139560

PATIENT
  Age: 36 Year
  Sex: Female

DRUGS (6)
  1. AMISULPRIDE [Concomitant]
     Indication: PSYCHOTIC DISORDER
     Dosage: 1600 MG, 1X/DAY
     Route: 048
     Dates: start: 20120509
  2. ORPHENADRINE CITRATE [Concomitant]
     Dosage: 100 MG, 1X/DAY
     Route: 048
  3. FLUOXETINE [Concomitant]
     Indication: DEPRESSION
     Dosage: 20 MG UNIT DOSE
     Route: 048
  4. VARENICLINE TARTRATE [Suspect]
     Indication: SMOKING CESSATION THERAPY
     Route: 048
     Dates: start: 20120502, end: 20120516
  5. OMEPRAZOLE [Concomitant]
     Dosage: 20 MG UNIT DOSE
     Route: 048
  6. FERROUS GLUCONATE [Concomitant]
     Dosage: 600 MG, 1X/DAY
     Route: 048

REACTIONS (2)
  - ELECTROCARDIOGRAM QT PROLONGED [None]
  - CARDIAC VENTRICULAR DISORDER [None]
